FAERS Safety Report 15779433 (Version 1)
Quarter: 2019Q1

REPORT INFORMATION
  Report Type: Spontaneous
  Country: US (occurrence: US)
  Receive Date: 20190101
  Receipt Date: 20190101
  Transmission Date: 20190417
  Serious: No
  Sender: FDA-Public Use
  Company Number: US-ASTRAZENECA-2018SF61621

PATIENT
  Age: 77 Year
  Sex: Female

DRUGS (1)
  1. FASENRA [Suspect]
     Active Substance: BENRALIZUMAB
     Indication: ASTHMA
     Dosage: 30MG EVERY FOUR WEEKS FOR FIRST 3 DOSES THEN EVERY 8 WEEKS THEREAFTER
     Route: 058

REACTIONS (3)
  - Headache [Unknown]
  - Epistaxis [Unknown]
  - Oropharyngeal pain [Unknown]
